FAERS Safety Report 5925490-4 (Version None)
Quarter: 2008Q4

REPORT INFORMATION
  Report Type: 
  Country: None (occurrence: None)
  Receive Date: 20081021
  Receipt Date: 20081011
  Transmission Date: 20090506
  Serious: Yes (Other)
  Sender: FDA-Public Use
  Company Number: PHEH2006US02667

PATIENT
  Age: 73 Year
  Sex: Female

DRUGS (1)
  1. GLEEVEC [Suspect]
     Indication: GASTROINTESTINAL STROMAL TUMOUR
     Dosage: 600 MG, QD
     Route: 048
     Dates: start: 20050101

REACTIONS (12)
  - ABDOMINAL PAIN UPPER [None]
  - BLOODY DISCHARGE [None]
  - DEHYDRATION [None]
  - DYSPHAGIA [None]
  - ERYTHEMA [None]
  - FISTULA [None]
  - FISTULA DISCHARGE [None]
  - INFLAMMATION [None]
  - MALAISE [None]
  - OESOPHAGEAL PAIN [None]
  - SECRETION DISCHARGE [None]
  - SKIN LESION [None]
